FAERS Safety Report 9826108 (Version 1)
Quarter: 2013Q4

REPORT INFORMATION
  Report Type: Spontaneous
  Country: US (occurrence: None)
  Receive Date: 20131028
  Receipt Date: 20131028
  Transmission Date: 20140711
  Serious: Yes (Hospitalization)
  Sender: FDA-Public Use
  Company Number: 2013US002264

PATIENT
  Age: 51 Year
  Sex: Female
  Weight: 77 kg

DRUGS (3)
  1. ICLUSIG [Suspect]
     Indication: CHRONIC MYELOID LEUKAEMIA
     Route: 048
     Dates: start: 20130731
  2. LASIX (FUROSEMIDE) [Concomitant]
  3. POTASSIUM (POTASSIUM) [Concomitant]

REACTIONS (2)
  - Pyrexia [None]
  - Pain [None]
